FAERS Safety Report 7611746-6 (Version None)
Quarter: 2011Q3

REPORT INFORMATION
  Report Type: 
  Country: None (occurrence: None)
  Receive Date: 20110715
  Receipt Date: 20110707
  Transmission Date: 20111222
  Serious: Yes (Hospitalization, Other)
  Sender: FDA-Public Use
  Company Number: AU-PFIZER INC-2011064953

PATIENT
  Age: 46 Year
  Sex: Male

DRUGS (2)
  1. PRISTIQ [Suspect]
     Indication: DEPRESSION
     Dosage: 200 MG, 1X/DAY
  2. DIAZEPAM [Concomitant]
     Indication: ANXIOLYTIC THERAPY
     Dosage: 5-10MG PRN

REACTIONS (8)
  - INTENTIONAL OVERDOSE [None]
  - ALANINE AMINOTRANSFERASE INCREASED [None]
  - SUICIDE ATTEMPT [None]
  - BLOOD BILIRUBIN INCREASED [None]
  - DRUG WITHDRAWAL SYNDROME [None]
  - NEUTROPHIL COUNT INCREASED [None]
  - GAMMA-GLUTAMYLTRANSFERASE INCREASED [None]
  - WHITE BLOOD CELL COUNT INCREASED [None]
